FAERS Safety Report 4641019-5 (Version None)
Quarter: 2005Q2

REPORT INFORMATION
  Report Type: 
  Country: None (occurrence: None)
  Receive Date: 20050324
  Receipt Date: 20040802
  Transmission Date: 20051028
  Serious: No
  Sender: FDA-Public Use
  Company Number: 0400033EN0020P

PATIENT
  Age: 7 Year
  Sex: Male
  Weight: 24 kg

DRUGS (1)
  1. ONCASPAR [Suspect]
     Indication: ACUTE LYMPHOCYTIC LEUKAEMIA
     Dosage: 2275 IU IM
     Route: 030

REACTIONS (4)
  - HYPERSENSITIVITY [None]
  - PRURITUS [None]
  - RASH [None]
  - VOMITING [None]
